FAERS Safety Report 5402072-4 (Version None)
Quarter: 2007Q3

REPORT INFORMATION
  Report Type: 
  Country: None (occurrence: None)
  Receive Date: 20070727
  Receipt Date: 20060105
  Transmission Date: 20080115
  Serious: Yes (Hospitalization)
  Sender: FDA-Public Use
  Company Number: THYM-10773

PATIENT
  Age: 54 Year
  Sex: Male
  Weight: 105 kg

DRUGS (8)
  1. THYMOGLOBULIN [Suspect]
     Indication: LIVER TRANSPLANT
     Dates: start: 20051007, end: 20051013
  2. LASIX [Concomitant]
  3. PROGRAF [Concomitant]
  4. VALCYTE [Concomitant]
  5. RANITIDINE [Concomitant]
  6. NYSTATIN [Concomitant]
  7. BACTRIM [Concomitant]
  8. CELLCEPT [Concomitant]

REACTIONS (2)
  - ANAEMIA [None]
  - PYREXIA [None]
